FAERS Safety Report 8963725 (Version 1)
Quarter: 2012Q4

REPORT INFORMATION
  Report Type: Report from Study
  Country: NO (occurrence: NO)
  Receive Date: 20121214
  Receipt Date: 20121214
  Transmission Date: 20130627
  Serious: Yes (Death, Hospitalization, Other)
  Sender: FDA-Public Use
  Company Number: NO-ACTELION-A-CH2011-53005

PATIENT
  Age: 8 Year
  Sex: Female

DRUGS (1)
  1. ZAVESCA [Suspect]
     Indication: NIEMANN-PICK DISEASE
     Dosage: 100 mg, tid
     Route: 048
     Dates: start: 20080819

REACTIONS (22)
  - Cardio-respiratory arrest [Fatal]
  - Niemann-Pick disease [Fatal]
  - Condition aggravated [Fatal]
  - Pneumonia [Unknown]
  - Dyspnoea [Recovered/Resolved]
  - Respiratory tract infection [Recovered/Resolved]
  - Wheelchair user [Fatal]
  - Convulsion [Fatal]
  - Neuropathy peripheral [Fatal]
  - Tremor [Fatal]
  - Brain injury [Fatal]
  - Oxygen saturation decreased [Fatal]
  - Dysphagia [Fatal]
  - Gastrointestinal tube insertion [Fatal]
  - Aphasia [Fatal]
  - Motor dysfunction [Fatal]
  - Fatigue [Fatal]
  - Muscle spasticity [Fatal]
  - Increased bronchial secretion [Recovered/Resolved]
  - Epilepsy [None]
  - Neuropathy peripheral [None]
  - Lung infection [None]
